FAERS Safety Report 7969735-8 (Version None)
Quarter: 2011Q4

REPORT INFORMATION
  Report Type: 
  Country: None (occurrence: None)
  Receive Date: 20111122
  Receipt Date: 20110824
  Transmission Date: 20120403
  Serious: No
  Sender: FDA-Public Use
  Company Number: PHEH2011US02642

PATIENT
  Age: 43 Year
  Sex: Female
  Weight: 55 kg

DRUGS (6)
  1. BALOFEN (BACLOFEN) [Concomitant]
  2. FAMPRIDINE (FAMPRIDINE) [Concomitant]
  3. PROVIGIL [Concomitant]
  4. NAMENDA [Concomitant]
  5. ZOLOFT [Concomitant]
  6. GILENYA [Suspect]
     Indication: PROGRESSIVE MULTIPLE SCLEROSIS
     Dosage: 0.5 MG, DAILY, ORAL
     Route: 048
     Dates: start: 20110728

REACTIONS (3)
  - BACK PAIN [None]
  - ABDOMINAL DISCOMFORT [None]
  - SOMNOLENCE [None]
